FAERS Safety Report 8589737-0 (Version None)
Quarter: 2012Q3

REPORT INFORMATION
  Report Type: 
  Country: None (occurrence: None)
  Receive Date: 20120813
  Receipt Date: 20120802
  Transmission Date: 20120928
  Serious: Yes (Life-Threatening, Disabling)
  Sender: FDA-Public Use
  Company Number: JP-ROCHE-1093361

PATIENT
  Sex: Female
  Weight: 55 kg

DRUGS (2)
  1. ROCEPHIN [Suspect]
     Route: 042
     Dates: start: 20120724, end: 20120724
  2. ROCEPHIN [Suspect]
     Indication: CYSTITIS
     Route: 042
     Dates: start: 20120706, end: 20120707

REACTIONS (2)
  - SHOCK [None]
  - CARDIO-RESPIRATORY ARREST [None]
